FAERS Safety Report 9417502 (Version 1)
Quarter: 2013Q3

REPORT INFORMATION
  Report Type: Spontaneous
  Country: RU (occurrence: None)
  Receive Date: 20130719
  Receipt Date: 20130719
  Transmission Date: 20140515
  Serious: Yes (Other)
  Sender: FDA-Public Use
  Company Number: SYM-2013-06428

PATIENT
  Sex: 0

DRUGS (4)
  1. FLUOROURACIL [Suspect]
     Indication: GASTRIC CANCER
     Dosage: 599NG/M2, INTRAVENSOU
     Route: 042
  2. DOCETAXEL [Suspect]
     Indication: GASTRIC CANCER
     Dosage: 75MG/M2, EVERY THREE WEEKS
  3. OXALIPLATIN [Suspect]
     Indication: GASTRIC CANCER
     Dosage: 100MG/M2, EVERY THREE WEEKS
  4. LEUCOVORIN [Suspect]
     Indication: GASTRIC CANCER
     Dosage: 50MG, EVERY THREE WEEKS

REACTIONS (1)
  - Neurotoxicity [None]
